FAERS Safety Report 20590774 (Version 2)
Quarter: 2022Q1

REPORT INFORMATION
  Report Type: Spontaneous
  Country: CA (occurrence: CA)
  Receive Date: 20220314
  Receipt Date: 20220325
  Transmission Date: 20220423
  Serious: Yes (Hospitalization)
  Sender: FDA-Public Use
  Company Number: CA-TEVA-2022-CA-2016694

PATIENT
  Age: 6 Decade
  Sex: Male

DRUGS (5)
  1. FLUVOXAMINE [Interacting]
     Active Substance: FLUVOXAMINE
     Indication: Schizoaffective disorder bipolar type
     Dosage: 200 MG
     Route: 065
  2. SERTRALINE [Suspect]
     Active Substance: SERTRALINE HYDROCHLORIDE
     Indication: Schizoaffective disorder bipolar type
     Dosage: 75 MG
     Route: 065
  3. CLOZAPINE [Interacting]
     Active Substance: CLOZAPINE
     Indication: Schizoaffective disorder bipolar type
     Dosage: 250 MILLIGRAM DAILY;
     Route: 065
  4. CLOZAPINE [Interacting]
     Active Substance: CLOZAPINE
     Dosage: 50 MG
     Route: 065
  5. BUPROPION [Concomitant]
     Active Substance: BUPROPION
     Indication: Schizoaffective disorder bipolar type
     Dosage: 300 MG
     Route: 065

REACTIONS (6)
  - Sedation [Unknown]
  - Orthostatic hypotension [Unknown]
  - Enuresis [Unknown]
  - Drug level increased [Unknown]
  - Drug interaction [Unknown]
  - Drug ineffective [Unknown]
